FAERS Safety Report 6919293-1 (Version None)
Quarter: 2010Q3

REPORT INFORMATION
  Report Type: 
  Country: None (occurrence: None)
  Receive Date: 20100811
  Receipt Date: 20100804
  Transmission Date: 20110219
  Serious: Yes (Death, Hospitalization)
  Sender: FDA-Public Use
  Company Number: A0865654A

PATIENT
  Age: 47 Year
  Sex: Female
  Weight: 103.6 kg

DRUGS (6)
  1. AVANDIA [Suspect]
     Dosage: 4MG PER DAY
     Dates: start: 20000101, end: 20081229
  2. AVANDAMET [Suspect]
  3. LANTUS [Concomitant]
  4. ZESTORETIC [Concomitant]
  5. LOPID [Concomitant]
  6. METFORMIN HCL [Concomitant]

REACTIONS (4)
  - BRONCHITIS [None]
  - CARDIOGENIC SHOCK [None]
  - DEATH [None]
  - MYOCARDIAL INFARCTION [None]
